FAERS Safety Report 4528199-7 (Version None)
Quarter: 2004Q4

REPORT INFORMATION
  Report Type: 
  Country: None (occurrence: None)
  Receive Date: 20041130
  Receipt Date: 20041011
  Transmission Date: 20050328
  Serious: No
  Sender: FDA-Public Use
  Company Number: 702329

PATIENT
  Age: 76 Year
  Sex: Male

DRUGS (7)
  1. AMEVIVE [Suspect]
     Indication: PSORIASIS
     Dosage: 15 MG QWIM
     Route: 030
     Dates: start: 20040101, end: 20040101
  2. OLUX [Concomitant]
  3. VIOXX [Concomitant]
  4. ZETIA [Concomitant]
  5. MONOPRIL [Concomitant]
  6. ALLOPURINOL [Concomitant]
  7. DIAZEPAM [Concomitant]

REACTIONS (1)
  - CD4 LYMPHOCYTES DECREASED [None]
